FAERS Safety Report 25600544 (Version 2)
Quarter: 2025Q4

REPORT INFORMATION
  Report Type: Spontaneous
  Country: US (occurrence: US)
  Receive Date: 20250724
  Receipt Date: 20251006
  Transmission Date: 20260117
  Serious: Yes (Other)
  Sender: NOVARTIS
  Company Number: US-002147023-NVSC2025US116782

PATIENT
  Sex: Female

DRUGS (1)
  1. KESIMPTA [Suspect]
     Active Substance: OFATUMUMAB
     Indication: Multiple sclerosis
     Dosage: UNK, QMO, (20MG/0.4 ML)
     Route: 058

REACTIONS (4)
  - Peripheral paralysis [Unknown]
  - Hypoaesthesia [Unknown]
  - Mobility decreased [Unknown]
  - Chills [Unknown]
